FAERS Safety Report 25927440 (Version 1)
Quarter: 2025Q4

REPORT INFORMATION
  Report Type: Spontaneous
  Country: CN (occurrence: CN)
  Receive Date: 20251015
  Receipt Date: 20251015
  Transmission Date: 20260117
  Serious: Yes (Hospitalization)
  Sender: ABBVIE
  Company Number: CN-ABBVIE-6502554

PATIENT
  Age: 54 Year
  Sex: Female
  Weight: 66 kg

DRUGS (4)
  1. VENETOCLAX [Suspect]
     Active Substance: VENETOCLAX
     Indication: Myelodysplastic syndrome
     Route: 048
     Dates: start: 20251001, end: 20251001
  2. STERILE WATER [Concomitant]
     Active Substance: WATER
     Indication: Myelodysplastic syndrome
     Dosage: INTRAVENOUS DRIP
     Route: 065
     Dates: start: 20251001, end: 20251010
  3. DECITABINE [Suspect]
     Active Substance: DECITABINE
     Indication: Myelodysplastic syndrome
     Dosage: INTRAVENOUS DRIP
     Route: 065
     Dates: start: 20251001, end: 20251010
  4. SODIUM CHLORIDE [Concomitant]
     Active Substance: SODIUM CHLORIDE
     Indication: Myelodysplastic syndrome
     Dosage: INTRAVENOUS DRIP
     Route: 065
     Dates: start: 20251001, end: 20251010

REACTIONS (5)
  - Myelosuppression [Unknown]
  - Neutrophil count decreased [Unknown]
  - Platelet count decreased [Unknown]
  - Haemoglobin decreased [Unknown]
  - White blood cell count decreased [Unknown]

NARRATIVE: CASE EVENT DATE: 20251004
